FAERS Safety Report 12641787 (Version 3)
Quarter: 2016Q3

REPORT INFORMATION
  Report Type: Report from Study
  Country: CA (occurrence: CA)
  Receive Date: 20160810
  Receipt Date: 20160901
  Transmission Date: 20161109
  Serious: Yes (Other)
  Sender: FDA-Public Use
  Company Number: CA-JNJFOC-20160805335

PATIENT
  Sex: Female
  Weight: 48 kg

DRUGS (1)
  1. REMICADE [Suspect]
     Active Substance: INFLIXIMAB
     Indication: CROHN^S DISEASE
     Route: 042
     Dates: start: 20160506

REACTIONS (3)
  - Rectovaginal septum abscess [Unknown]
  - Purulent discharge [Unknown]
  - Adverse event [Unknown]

NARRATIVE: CASE EVENT DATE: 2016
